APPROVED DRUG PRODUCT: VIDEX EC
Active Ingredient: DIDANOSINE
Strength: 200MG **Federal Register determination that product was not discontinued or withdrawn for safety or effectiveness reasons**
Dosage Form/Route: CAPSULE, DELAYED REL PELLETS;ORAL
Application: N021183 | Product #002
Applicant: BRISTOL MYERS SQUIBB CO
Approved: Oct 31, 2000 | RLD: Yes | RS: No | Type: DISCN